FAERS Safety Report 10926791 (Version 1)
Quarter: 2015Q1

REPORT INFORMATION
  Report Type: Spontaneous
  Country: TN (occurrence: None)
  Receive Date: 20150316
  Receipt Date: 20150316
  Transmission Date: 20150721
  Serious: Yes (Other)
  Sender: FDA-Public Use
  Company Number: UCM201503-000169

PATIENT
  Age: 50 Year
  Sex: Female

DRUGS (4)
  1. DIVALPROEX SODIUM (DIVALPROEX SODIUM) (DIVALPROEX SODIUM) [Suspect]
     Active Substance: DIVALPROEX SODIUM
     Indication: EPILEPSY
  2. PHENOBARBITAL (PHENOBARBIAL) (PHENOBARBITAL) [Suspect]
     Active Substance: PHENOBARBITAL
     Indication: EPILEPSY
  3. CELECOXIB (CELECOXIB) (CELECOXIB) [Suspect]
     Active Substance: CELECOXIB
     Dates: start: 201306
  4. LEVETIRACETAM (LEVETIRACETAM) (LEVETIRACETAM) [Suspect]
     Active Substance: LEVETIRACETAM
     Indication: EPILEPSY

REACTIONS (10)
  - Aspartate aminotransferase increased [None]
  - Multi-organ disorder [None]
  - Generalised erythema [None]
  - Drug hypersensitivity [None]
  - Lymphadenopathy [None]
  - Drug reaction with eosinophilia and systemic symptoms [None]
  - Pyrexia [None]
  - Status epilepticus [None]
  - Cardio-respiratory arrest [None]
  - Alanine aminotransferase increased [None]
